FAERS Safety Report 6155237-0 (Version None)
Quarter: 2009Q2

REPORT INFORMATION
  Report Type: 
  Country: None (occurrence: None)
  Receive Date: 20090415
  Receipt Date: 20090407
  Transmission Date: 20091009
  Serious: Yes (Other)
  Sender: FDA-Public Use
  Company Number: PHHY2009JP13491

PATIENT
  Age: 67 Year
  Sex: Male

DRUGS (6)
  1. ZOMETA [Suspect]
     Indication: METASTASES TO BONE
     Dosage: 4 MG, QMO
     Route: 042
     Dates: start: 20070501, end: 20090324
  2. PURSENNID [Concomitant]
     Dosage: 24 MG, UNK
     Route: 048
     Dates: start: 20081120
  3. DECADRON [Concomitant]
     Dosage: 1 MG, UNK
     Route: 048
     Dates: start: 20090106
  4. HYPEN [Concomitant]
     Dosage: 400 MG, UNK
     Route: 048
     Dates: start: 20090106
  5. ESTRACYT [Concomitant]
     Dosage: 2 DF, UNK
     Route: 048
     Dates: start: 20081120, end: 20090106
  6. ODYNE [Concomitant]
     Dosage: 250 MG, UNK
     Route: 048
     Dates: start: 20080703, end: 20081002

REACTIONS (2)
  - OSTEOMYELITIS [None]
  - PROSTATIC SPECIFIC ANTIGEN INCREASED [None]
